FAERS Safety Report 5092080-8 (Version None)
Quarter: 2006Q3

REPORT INFORMATION
  Report Type: 
  Country: None (occurrence: None)
  Receive Date: 20060825
  Receipt Date: 20060810
  Transmission Date: 20061208
  Serious: Yes (Hospitalization)
  Sender: FDA-Public Use
  Company Number: 8018460

PATIENT
  Age: 36 Year
  Sex: Male

DRUGS (4)
  1. KEPPRA [Suspect]
     Indication: EPILEPSY
     Dosage: 1500 MG/D PO
     Route: 048
     Dates: start: 20060719
  2. GABAPENTIN [Suspect]
     Indication: EPILEPSY
     Dosage: 1800 MG/D PO
     Route: 048
     Dates: start: 20060714, end: 20060728
  3. TRAMADOL HCL [Concomitant]
  4. LORAZEPAM [Concomitant]

REACTIONS (2)
  - NEUTROPENIA [None]
  - PLATELET COUNT DECREASED [None]
